FAERS Safety Report 16382041 (Version 2)
Quarter: 2019Q4

REPORT INFORMATION
  Report Type: Spontaneous
  Country: FR (occurrence: FR)
  Receive Date: 20190603
  Receipt Date: 20191004
  Transmission Date: 20200122
  Serious: Yes (Hospitalization, Other)
  Sender: FDA-Public Use
  Company Number: FR-SA-2019SA141788

PATIENT
  Age: 65 Year
  Sex: Male
  Weight: 70 kg

DRUGS (22)
  1. DEXAMETHASONE. [Suspect]
     Active Substance: DEXAMETHASONE
     Indication: COLON CANCER METASTATIC
     Dosage: 20 MG, QW
     Route: 042
     Dates: start: 20060520
  2. CORTANCYL [Concomitant]
     Active Substance: PREDNISONE
     Indication: PREMEDICATION
     Dosage: UNK UNK, UNK
     Route: 048
  3. SULFARLEM S 25 [Concomitant]
     Indication: PRODUCT USED FOR UNKNOWN INDICATION
     Route: 048
  4. OXAZEPAM. [Concomitant]
     Active Substance: OXAZEPAM
  5. RANITIDINE HYDROCHLORIDE. [Suspect]
     Active Substance: RANITIDINE HYDROCHLORIDE
     Indication: PREMEDICATION
     Dosage: 50 MG, QW
     Route: 042
     Dates: start: 20060520
  6. ERBITUX [Suspect]
     Active Substance: CETUXIMAB
     Indication: COLON CANCER METASTATIC
     Dosage: 250 MG, QW
     Route: 042
     Dates: start: 20060520
  7. ERBITUX [Suspect]
     Active Substance: CETUXIMAB
     Dosage: UNK UNK, UNK
     Route: 042
     Dates: start: 20060820, end: 20060820
  8. GABAPENTIN. [Concomitant]
     Active Substance: GABAPENTIN
  9. ATROPINE SULFATE. [Suspect]
     Active Substance: ATROPINE SULFATE
     Indication: PRODUCT USED FOR UNKNOWN INDICATION
     Dosage: UNK UNK, UNK
     Route: 042
  10. FRAXODI [Suspect]
     Active Substance: NADROPARIN CALCIUM
     Dosage: 0.6 ML U
     Route: 058
  11. ONDANSETRON HYDROCHLORIDE. [Suspect]
     Active Substance: ONDANSETRON HYDROCHLORIDE
     Indication: PREMEDICATION
     Dosage: UNK UNK, QCY
     Route: 042
     Dates: start: 20060520
  12. IRINOTECAN [Suspect]
     Active Substance: IRINOTECAN
     Indication: COLON CANCER METASTATIC
     Dosage: 180 MG, Q2M
     Route: 042
     Dates: start: 20060520
  13. INEXIUM [ESOMEPRAZOLE MAGNESIUM] [Concomitant]
     Active Substance: ESOMEPRAZOLE MAGNESIUM
     Indication: PRODUCT USED FOR UNKNOWN INDICATION
  14. NEURONTIN [Concomitant]
     Active Substance: GABAPENTIN
     Indication: PRODUCT USED FOR UNKNOWN INDICATION
     Route: 048
  15. PREDNISONE. [Concomitant]
     Active Substance: PREDNISONE
  16. ESOMEPRAZOLE. [Concomitant]
     Active Substance: ESOMEPRAZOLE MAGNESIUM
  17. ALPRAZOLAM. [Concomitant]
     Active Substance: ALPRAZOLAM
  18. IRINOTECAN [Suspect]
     Active Substance: IRINOTECAN
     Dosage: UNK UNK, UNK
     Route: 042
     Dates: start: 20060828, end: 20060828
  19. SERESTA [Concomitant]
     Active Substance: OXAZEPAM
     Indication: PRODUCT USED FOR UNKNOWN INDICATION
     Route: 048
  20. XANAX [Concomitant]
     Active Substance: ALPRAZOLAM
     Indication: PRODUCT USED FOR UNKNOWN INDICATION
     Route: 048
  21. POLARAMINE [Concomitant]
     Active Substance: DEXCHLORPHENIRAMINE MALEATE
     Indication: PREMEDICATION
     Dosage: UNK UNK, QCY
     Route: 042
     Dates: start: 20060520
  22. ATROPINE. [Concomitant]
     Active Substance: ATROPINE
     Dosage: UNK
     Route: 042
     Dates: start: 20060520

REACTIONS (5)
  - Pulmonary embolism [Recovering/Resolving]
  - Phlebitis [Not Recovered/Not Resolved]
  - Drug ineffective [Unknown]
  - Deep vein thrombosis [Recovering/Resolving]
  - Dyspnoea [Unknown]

NARRATIVE: CASE EVENT DATE: 20060820
